FAERS Safety Report 5634840-8 (Version None)
Quarter: 2008Q1

REPORT INFORMATION
  Report Type: 
  Country: None (occurrence: None)
  Receive Date: 20080131
  Receipt Date: 20071018
  Transmission Date: 20080703
  Serious: Yes (Life-Threatening, Hospitalization, Other)
  Sender: FDA-Public Use
  Company Number: PHEH2007US10789

PATIENT
  Age: 76 Year
  Sex: Female
  Weight: 77.1 kg

DRUGS (11)
  1. TEKTURNA [Suspect]
     Dates: start: 20070703, end: 20070730
  2. TEKTURNA [Suspect]
     Dates: start: 20070813
  3. LISINOPRIL [Concomitant]
  4. DIOVAN [Concomitant]
  5. NEXIUM [Concomitant]
  6. POTASSIUM (POTASSIUM) TABLET [Concomitant]
  7. RESTASIS (CICLOSPORIN) [Concomitant]
  8. LASIX [Concomitant]
  9. ASPIRIN [Concomitant]
  10. TENORMIN [Concomitant]
  11. AMLODIPINE BESYOLATE (AMLODIPINE BESILATE) [Concomitant]

REACTIONS (8)
  - ANGIOEDEMA [None]
  - DYSARTHRIA [None]
  - DYSPHAGIA [None]
  - DYSPNOEA [None]
  - ENDOTRACHEAL INTUBATION [None]
  - HISTAMINE LEVEL INCREASED [None]
  - TONGUE OEDEMA [None]
  - TRYPTASE [None]
